FAERS Safety Report 22944398 (Version 2)
Quarter: 2023Q4

REPORT INFORMATION
  Report Type: Spontaneous
  Country: US (occurrence: US)
  Receive Date: 20230914
  Receipt Date: 20231003
  Transmission Date: 20240110
  Serious: Yes (Hospitalization, Other)
  Sender: FDA-Public Use
  Company Number: US-SUN PHARMACEUTICAL INDUSTRIES LTD-2023R1-408013

PATIENT
  Age: 19 Year
  Sex: Female
  Weight: 52 kg

DRUGS (3)
  1. CLONAZEPAM [Suspect]
     Active Substance: CLONAZEPAM
     Indication: Product used for unknown indication
     Dosage: 7.5 MILLIGRAM
     Route: 048
  2. FLUOXETINE [Suspect]
     Active Substance: FLUOXETINE HYDROCHLORIDE
     Indication: Product used for unknown indication
     Dosage: 500 MILLIGRAM
     Route: 048
  3. LAMOTRIGINE [Suspect]
     Active Substance: LAMOTRIGINE
     Indication: Product used for unknown indication
     Dosage: 3750 MILLIGRAM
     Route: 048

REACTIONS (5)
  - Overdose [Recovered/Resolved]
  - Pneumonia [Recovered/Resolved]
  - Mediastinitis [Recovered/Resolved]
  - Rhabdomyolysis [Recovered/Resolved]
  - Seizure [Recovered/Resolved]
